FAERS Safety Report 20406779 (Version 1)
Quarter: 2022Q1

REPORT INFORMATION
  Report Type: Report from Study
  Country: BR (occurrence: BR)
  Receive Date: 20220131
  Receipt Date: 20220131
  Transmission Date: 20220423
  Serious: Yes (Other)
  Sender: FDA-Public Use
  Company Number: BR-TAKEDA-BR202027985

PATIENT
  Sex: Male
  Weight: 40 kg

DRUGS (2)
  1. HEMO-8R [Suspect]
     Active Substance: ANTIHEMOPHILIC FACTOR, HUMAN RECOMBINANT
     Indication: Factor VIII deficiency
     Dosage: 1000 INTERNATIONAL UNIT, 3/WEEK
     Route: 042
     Dates: start: 19990605
  2. HEMO-8R [Suspect]
     Active Substance: ANTIHEMOPHILIC FACTOR, HUMAN RECOMBINANT
     Dosage: 1500 INTERNATIONAL UNIT, 3/WEEK
     Route: 042
     Dates: start: 19990605

REACTIONS (11)
  - Nephrolithiasis [Unknown]
  - Bacterial infection [Unknown]
  - Gastritis [Recovering/Resolving]
  - Decreased appetite [Unknown]
  - Insomnia [Unknown]
  - Osteoarthritis [Recovering/Resolving]
  - Musculoskeletal discomfort [Recovering/Resolving]
  - Gastrointestinal disorder [Recovering/Resolving]
  - Bacterial test positive [Recovering/Resolving]
  - Cough [Recovering/Resolving]
  - Dyspnoea [Recovering/Resolving]
